FAERS Safety Report 5112838-6 (Version None)
Quarter: 2006Q3

REPORT INFORMATION
  Report Type: 
  Country: None (occurrence: None)
  Receive Date: 20060922
  Receipt Date: 20060918
  Transmission Date: 20061208
  Serious: Yes (Life-Threatening)
  Sender: FDA-Public Use
  Company Number: PHRM2006FR02570

PATIENT
  Age: 58 Year
  Sex: Female
  Weight: 65 kg

DRUGS (5)
  1. LEVOTHYROXINE SODIUM [Concomitant]
     Dosage: 125 MG DAILY
     Route: 048
  2. ADVIL [Concomitant]
     Route: 048
  3. OGAST [Concomitant]
     Dosage: 1 DF, QD
     Route: 048
  4. GLEEVEC [Suspect]
     Indication: CHRONIC MYELOID LEUKAEMIA
     Dosage: 400 MG DAILY
     Route: 048
     Dates: start: 20011015
  5. GLEEVEC [Suspect]
     Dosage: 600 MG DAILY
     Route: 048
     Dates: start: 20050101

REACTIONS (2)
  - LYMPHADENOPATHY [None]
  - NON-HODGKIN'S LYMPHOMA UNSPECIFIED HISTOLOGY AGGRESSIVE [None]
